FAERS Safety Report 11403811 (Version 2)
Quarter: 2015Q3

REPORT INFORMATION
  Report Type: Spontaneous
  Country: MX (occurrence: MX)
  Receive Date: 20150821
  Receipt Date: 20150828
  Transmission Date: 20151125
  Serious: Yes (Hospitalization)
  Sender: FDA-Public Use
  Company Number: MX-NOVOPROD-460615

PATIENT
  Age: 59 Year
  Sex: Female
  Weight: 66 kg

DRUGS (5)
  1. LEVEMIR [Suspect]
     Active Substance: INSULIN DETEMIR
     Indication: DIABETES MELLITUS
     Dosage: 30 IU, QD (15 IU AT THE MORNING, 15 IU AT NIGHT)
     Route: 065
     Dates: start: 201504
  2. DIMEFOR [Concomitant]
     Dosage: 1 DF, QD
     Route: 048
     Dates: start: 201408
  3. BEZAFIBRATE [Concomitant]
     Active Substance: BEZAFIBRATE
     Dosage: 3 EVERY 7 DAYS
     Route: 048
     Dates: start: 201408
  4. VYTORIN [Concomitant]
     Active Substance: EZETIMIBE\SIMVASTATIN
     Dosage: 1 EVERY 3 DAYS
     Route: 048
     Dates: start: 201408
  5. ASPIRINA [Concomitant]
     Active Substance: ASPIRIN
     Dosage: 1 DF, QD
     Route: 048
     Dates: start: 201408

REACTIONS (7)
  - Asthenia [Not Recovered/Not Resolved]
  - Urinary tract infection [Not Recovered/Not Resolved]
  - Lethargy [Not Recovered/Not Resolved]
  - Dizziness [Not Recovered/Not Resolved]
  - Anxiety [Not Recovered/Not Resolved]
  - Product colour issue [Unknown]
  - Incorrect product storage [Unknown]

NARRATIVE: CASE EVENT DATE: 20150801
